FAERS Safety Report 15293668 (Version 2)
Quarter: 2018Q4

REPORT INFORMATION
  Report Type: Spontaneous
  Country: US (occurrence: US)
  Receive Date: 20180820
  Receipt Date: 20181211
  Transmission Date: 20190204
  Serious: Yes (Life-Threatening, Hospitalization)
  Sender: FDA-Public Use
  Company Number: US-JNJFOC-20180800928

PATIENT
  Sex: Male
  Weight: 61.24 kg

DRUGS (1)
  1. ERLEADA [Suspect]
     Active Substance: APALUTAMIDE
     Indication: PROSTATE CANCER
     Route: 048
     Dates: start: 2018

REACTIONS (8)
  - Weight decreased [Unknown]
  - Blood glucose fluctuation [Unknown]
  - Myocardial infarction [Unknown]
  - Micturition disorder [Unknown]
  - Fatigue [Unknown]
  - Pollakiuria [Unknown]
  - Blood pressure increased [Unknown]
  - Anaemia [Unknown]

NARRATIVE: CASE EVENT DATE: 2018
